FAERS Safety Report 18076178 (Version 1)
Quarter: 2020Q3

REPORT INFORMATION
  Report Type: Other
  Country: FR (occurrence: FR)
  Receive Date: 20200728
  Receipt Date: 20200728
  Transmission Date: 20201103
  Serious: Yes (Hospitalization, Other)
  Sender: FDA-Public Use
  Company Number: FR-ASTELLAS-2020US024858

PATIENT
  Age: 65 Year
  Sex: Male
  Weight: 47 kg

DRUGS (1)
  1. TACROLIMUS. [Suspect]
     Active Substance: TACROLIMUS
     Indication: PROPHYLAXIS AGAINST TRANSPLANT REJECTION
     Route: 041
     Dates: start: 20200428, end: 20200515

REACTIONS (5)
  - Acute kidney injury [Recovered/Resolved]
  - Tremor [Not Recovered/Not Resolved]
  - Metabolic acidosis [Recovered/Resolved]
  - Posterior reversible encephalopathy syndrome [Not Recovered/Not Resolved]
  - Confusional state [Not Recovered/Not Resolved]

NARRATIVE: CASE EVENT DATE: 20200430
